FAERS Safety Report 13127485 (Version 1)
Quarter: 2017Q1

REPORT INFORMATION
  Report Type: Spontaneous
  Country: US (occurrence: US)
  Receive Date: 20170118
  Receipt Date: 20170118
  Transmission Date: 20170428
  Serious: No
  Sender: FDA-Public Use
  Company Number: US-ACTELION-A-US2017-148435

PATIENT

DRUGS (1)
  1. UPTRAVI [Suspect]
     Active Substance: SELEXIPAG
     Indication: PRODUCT USED FOR UNKNOWN INDICATION
     Route: 048

REACTIONS (19)
  - Heart rate increased [Unknown]
  - Nasal congestion [Unknown]
  - Hypoaesthesia [Unknown]
  - Diarrhoea [Unknown]
  - Headache [Unknown]
  - Gastrooesophageal reflux disease [Unknown]
  - Oxygen supplementation [Unknown]
  - Rash [Unknown]
  - Pain in extremity [Unknown]
  - Dyspnoea [Unknown]
  - Palpitations [Unknown]
  - Condition aggravated [Unknown]
  - Administration site pain [Unknown]
  - Administration site erythema [Unknown]
  - Blood pressure decreased [Unknown]
  - Paraesthesia [Unknown]
  - Hyperhidrosis [Unknown]
  - Cardiac flutter [Unknown]
  - Pain in jaw [Unknown]
